FAERS Safety Report 23715402 (Version 2)
Quarter: 2024Q4

REPORT INFORMATION
  Report Type: Spontaneous
  Country: US (occurrence: US)
  Receive Date: 20240407
  Receipt Date: 20241006
  Transmission Date: 20250114
  Serious: Yes (Other)
  Sender: JOHNSON AND JOHNSON
  Company Number: US-JNJFOC-20240400008

PATIENT
  Age: 82 Year
  Sex: Female
  Weight: 70.824 kg

DRUGS (24)
  1. OPSUMIT [Suspect]
     Active Substance: MACITENTAN
     Indication: Product used for unknown indication
     Route: 048
  2. TYVASO [Suspect]
     Active Substance: TREPROSTINIL
     Indication: Pulmonary arterial hypertension
     Route: 065
  3. TYVASO [Suspect]
     Active Substance: TREPROSTINIL
     Dosage: 18-72 UG, QI
     Route: 065
  4. TYVASO [Suspect]
     Active Substance: TREPROSTINIL
     Route: 065
     Dates: start: 20220224
  5. VITAMIN C [Concomitant]
     Active Substance: ASCORBIC ACID
  6. DILTIAZEM [Concomitant]
     Active Substance: DILTIAZEM
  7. CYMBALTA [Concomitant]
     Active Substance: DULOXETINE HYDROCHLORIDE
  8. LIPITOR [Concomitant]
     Active Substance: ATORVASTATIN CALCIUM
  9. PEPCID [Concomitant]
     Active Substance: FAMOTIDINE
  10. LASIX [Concomitant]
     Active Substance: FUROSEMIDE
  11. ROPINIROLE [Concomitant]
     Active Substance: ROPINIROLE
  12. CYANOCOBALAMIN [Concomitant]
     Active Substance: CYANOCOBALAMIN
  13. POTASSIUM [Concomitant]
     Active Substance: POTASSIUM
  14. ELIQUIS [Concomitant]
     Active Substance: APIXABAN
  15. LEVOTHYROXINE [Concomitant]
     Active Substance: LEVOTHYROXINE
  16. MUCINEX [Concomitant]
     Active Substance: GUAIFENESIN
  17. VITAMIN D3 [Concomitant]
     Active Substance: CHOLECALCIFEROL
  18. VITAMINS NOS [Concomitant]
     Active Substance: VITAMINS
  19. TRAZODONE HYDROCHLORIDE [Concomitant]
     Active Substance: TRAZODONE HYDROCHLORIDE
  20. CENTRUM SILVER [ASCORBIC ACID;BIOTIN;CALCIUM;CALCIUM PANTOTHENATE;CHLO [Concomitant]
  21. OXYGEN [Concomitant]
     Active Substance: OXYGEN
  22. PRAMIPEXOLE [Concomitant]
     Active Substance: PRAMIPEXOLE\PRAMIPEXOLE DIHYDROCHLORIDE
  23. KLONOPIN [Concomitant]
     Active Substance: CLONAZEPAM
  24. PAXLOVID [Concomitant]
     Active Substance: NIRMATRELVIR\RITONAVIR

REACTIONS (8)
  - Neuropathy peripheral [Unknown]
  - Dental restoration failure [Unknown]
  - Therapeutic response unexpected [Unknown]
  - Vitamin B12 decreased [Unknown]
  - Platelet count decreased [Unknown]
  - Lymphocyte count decreased [Unknown]
  - White blood cell count increased [Unknown]
  - Platelet disorder [Unknown]

NARRATIVE: CASE EVENT DATE: 20240301
